FAERS Safety Report 16039013 (Version 3)
Quarter: 2019Q2

REPORT INFORMATION
  Report Type: Spontaneous
  Country: US (occurrence: US)
  Receive Date: 20190306
  Receipt Date: 20190423
  Transmission Date: 20190711
  Serious: Yes (Other)
  Sender: FDA-Public Use
  Company Number: US-ASTRAZENECA-2018SF33440

PATIENT
  Age: 24945 Day
  Sex: Male
  Weight: 106.6 kg

DRUGS (20)
  1. TAMSULOSIN [Concomitant]
     Active Substance: TAMSULOSIN
  2. ZOFRAN [Concomitant]
     Active Substance: ONDANSETRON HYDROCHLORIDE
  3. LASIX [Concomitant]
     Active Substance: FUROSEMIDE
  4. LATANOPROST. [Concomitant]
     Active Substance: LATANOPROST
  5. NIFEDIPINE. [Concomitant]
     Active Substance: NIFEDIPINE
  6. NEXIUM I.V. [Suspect]
     Active Substance: ESOMEPRAZOLE SODIUM
     Dosage: PRIOR TO KIDNEY INJURY
     Route: 042
  7. PRILOSEC [Suspect]
     Active Substance: OMEPRAZOLE MAGNESIUM
     Indication: GASTROOESOPHAGEAL REFLUX DISEASE
     Route: 048
     Dates: start: 20140124, end: 201603
  8. SIMVASTATIN. [Concomitant]
     Active Substance: SIMVASTATIN
  9. VALIUM [Concomitant]
     Active Substance: DIAZEPAM
  10. LABETALOL [Concomitant]
     Active Substance: LABETALOL\LABETALOL HYDROCHLORIDE
  11. PRILOSEC [Suspect]
     Active Substance: OMEPRAZOLE MAGNESIUM
     Indication: GASTROOESOPHAGEAL REFLUX DISEASE
     Dosage: GENERIC
     Route: 048
     Dates: start: 20141007, end: 20160306
  12. LISINOPRIL. [Concomitant]
     Active Substance: LISINOPRIL
  13. NEXIUM [Suspect]
     Active Substance: ESOMEPRAZOLE MAGNESIUM
     Route: 048
     Dates: start: 201401, end: 201603
  14. ALLOPURINOL. [Concomitant]
     Active Substance: ALLOPURINOL
  15. TRAZODONE [Concomitant]
     Active Substance: TRAZODONE HYDROCHLORIDE
  16. METFORMIN [Concomitant]
     Active Substance: METFORMIN HYDROCHLORIDE
  17. SEROQUEL [Concomitant]
     Active Substance: QUETIAPINE FUMARATE
  18. FAMOTIDINE. [Concomitant]
     Active Substance: FAMOTIDINE
  19. PRILOSEC [Suspect]
     Active Substance: OMEPRAZOLE MAGNESIUM
     Indication: GASTROOESOPHAGEAL REFLUX DISEASE
     Route: 048
     Dates: start: 20120101, end: 20160309
  20. LAMICTAL [Concomitant]
     Active Substance: LAMOTRIGINE

REACTIONS (3)
  - Renal failure [Unknown]
  - Renal injury [Unknown]
  - Chronic kidney disease [Not Recovered/Not Resolved]

NARRATIVE: CASE EVENT DATE: 20131105
